FAERS Safety Report 13325214 (Version 9)
Quarter: 2018Q3

REPORT INFORMATION
  Report Type: Report from Study
  Country: US (occurrence: US)
  Receive Date: 20170310
  Receipt Date: 20180706
  Transmission Date: 20181010
  Serious: Yes (Hospitalization)
  Sender: FDA-Public Use
  Company Number: US-ACTELION-A-US2017-147877

PATIENT
  Age: 53 Year
  Sex: Female

DRUGS (15)
  1. ULTRAM [Concomitant]
     Active Substance: TRAMADOL HYDROCHLORIDE
  2. LIDOCAINE. [Concomitant]
     Active Substance: LIDOCAINE
  3. TRAZODONE [Concomitant]
     Active Substance: TRAZODONE HYDROCHLORIDE
  4. OPSUMIT [Suspect]
     Active Substance: MACITENTAN
     Indication: PULMONARY ARTERIAL HYPERTENSION
     Dosage: 10 MG, QD
     Route: 048
     Dates: start: 20161130
  5. ROPINIROLE. [Concomitant]
     Active Substance: ROPINIROLE
  6. NITROFURANTOIN. [Concomitant]
     Active Substance: NITROFURANTOIN
  7. REMODULIN [Concomitant]
     Active Substance: TREPROSTINIL
     Dosage: UNK
     Dates: end: 20180625
  8. RESTASIS [Concomitant]
     Active Substance: CYCLOSPORINE
  9. LIDODERM [Concomitant]
     Active Substance: LIDOCAINE
  10. AMBIEN [Concomitant]
     Active Substance: ZOLPIDEM TARTRATE
  11. LYRICA [Concomitant]
     Active Substance: PREGABALIN
  12. WELLBUTRIN [Concomitant]
     Active Substance: BUPROPION HYDROCHLORIDE
  13. FUROSEMIDE. [Concomitant]
     Active Substance: FUROSEMIDE
  14. LISINOPRIL. [Concomitant]
     Active Substance: LISINOPRIL
  15. WARFARIN [Concomitant]
     Active Substance: WARFARIN

REACTIONS (22)
  - Malaise [Unknown]
  - Drug dose omission [Recovered/Resolved]
  - Wheezing [Unknown]
  - Device infusion issue [Recovered/Resolved]
  - Device issue [Unknown]
  - Autoimmune disorder [Unknown]
  - Cough [Unknown]
  - Localised infection [Unknown]
  - Respiratory tract infection [Recovering/Resolving]
  - Chronic obstructive pulmonary disease [Unknown]
  - Nasal congestion [Not Recovered/Not Resolved]
  - Headache [Recovering/Resolving]
  - Chest discomfort [Unknown]
  - Catheter site infection [Unknown]
  - Nausea [Unknown]
  - Abdominal distension [Unknown]
  - Dyspnoea [Unknown]
  - Pain in extremity [Unknown]
  - Dyspnoea exertional [Unknown]
  - Vomiting [Unknown]
  - Catheter site abscess [Unknown]
  - Respiratory failure [Unknown]

NARRATIVE: CASE EVENT DATE: 20161207
